FAERS Safety Report 24834761 (Version 1)
Quarter: 2025Q1

REPORT INFORMATION
  Report Type: Spontaneous
  Country: US (occurrence: None)
  Receive Date: 20250110
  Receipt Date: 20250110
  Transmission Date: 20250409
  Serious: Yes (Other)
  Sender: FDA-CTU
  Company Number: None

PATIENT

DRUGS (1)
  1. GAMMAGARD [Suspect]
     Active Substance: HUMAN IMMUNOGLOBULIN G

REACTIONS (7)
  - Dyspnoea [None]
  - Chest discomfort [None]
  - Throat tightness [None]
  - Infusion related reaction [None]
  - Therapy interrupted [None]
  - Cough [None]
  - Wheezing [None]
